FAERS Safety Report 8169628-X (Version None)
Quarter: 2012Q1

REPORT INFORMATION
  Report Type: 
  Country: None (occurrence: None)
  Receive Date: 20120228
  Receipt Date: 20120222
  Transmission Date: 20120608
  Serious: No
  Sender: FDA-Public Use
  Company Number: US-PFIZER INC-2012049104

PATIENT
  Sex: Male
  Weight: 64.399 kg

DRUGS (3)
  1. LYRICA [Suspect]
     Indication: MYOFASCIAL PAIN SYNDROME
     Dosage: 75 MG, 2X/DAY
     Route: 048
     Dates: start: 20120123
  2. LYRICA [Suspect]
     Dosage: 75 MG, 1X/DAY
     Route: 048
     Dates: start: 20120218
  3. VICODIN [Concomitant]
     Indication: PAIN
     Dosage: 500 MG, AS NEEDED
     Route: 048

REACTIONS (1)
  - DRUG INEFFECTIVE [None]
